FAERS Safety Report 19758996 (Version 1)
Quarter: 2021Q3

REPORT INFORMATION
  Report Type: Spontaneous
  Country: US (occurrence: US)
  Receive Date: 20210829
  Receipt Date: 20210829
  Transmission Date: 20211014
  Serious: No
  Sender: FDA-Public Use
  Company Number: US-ORGANON-O2108USA001219

PATIENT
  Sex: Female

DRUGS (1)
  1. NEXPLANON [Suspect]
     Active Substance: ETONOGESTREL
     Indication: CONTRACEPTION
     Dosage: 20 MICROGRAM, ONCE
     Route: 059
     Dates: start: 20190807, end: 20200312

REACTIONS (3)
  - Depression [Unknown]
  - Weight increased [Unknown]
  - Mood altered [Unknown]
